FAERS Safety Report 8369520-1 (Version None)
Quarter: 2012Q2

REPORT INFORMATION
  Report Type: 
  Country: None (occurrence: None)
  Receive Date: 20120518
  Receipt Date: 20120510
  Transmission Date: 20120825
  Serious: Yes (Death, Hospitalization)
  Sender: FDA-Public Use
  Company Number: JP-JNJFOC-20110102047

PATIENT
  Age: 48 Year
  Sex: Female
  Weight: 43 kg

DRUGS (197)
  1. LASIX [Suspect]
     Route: 048
     Dates: start: 20101026, end: 20101027
  2. MEROPENEM [Suspect]
     Indication: PRODUCT USED FOR UNKNOWN INDICATION
     Dates: start: 20101027, end: 20101105
  3. ALDACTONE [Suspect]
     Route: 048
     Dates: start: 20101102, end: 20101106
  4. ROCEPHIN [Suspect]
     Indication: PRODUCT USED FOR UNKNOWN INDICATION
     Dates: start: 20101118, end: 20101119
  5. URSO 250 [Concomitant]
     Route: 048
     Dates: start: 20101221, end: 20110103
  6. HEPAFLUSH [Concomitant]
     Dates: start: 20100817, end: 20100817
  7. HEPAFLUSH [Concomitant]
     Dates: start: 20101022, end: 20101111
  8. NEO-MINOPHAGEN C [Concomitant]
     Dates: end: 20101012
  9. NEO-MINOPHAGEN C [Concomitant]
     Dates: start: 20100928, end: 20100928
  10. DOVONEX [Concomitant]
     Route: 061
     Dates: start: 20101008, end: 20101008
  11. ATARAX [Concomitant]
     Dates: start: 20101024, end: 20101025
  12. POLAPREZINC [Concomitant]
     Dosage: DOSE: 150DF A DAY
     Route: 048
     Dates: start: 20101105, end: 20101110
  13. GLUCOSE [Concomitant]
     Dates: start: 20101119, end: 20110103
  14. HUMALOG [Concomitant]
     Dates: start: 20101119, end: 20101119
  15. ACETAMINOPHEN [Concomitant]
     Dosage: 200DF
     Route: 048
     Dates: start: 20101119, end: 20101123
  16. ALLOID G [Concomitant]
     Route: 048
     Dates: start: 20101230, end: 20110103
  17. ALLOID G [Concomitant]
     Route: 048
     Dates: start: 20101124, end: 20101130
  18. GARENOXACIN MESYLATE [Concomitant]
     Route: 048
     Dates: start: 20101216
  19. INTAL [Concomitant]
     Route: 055
     Dates: start: 20101222, end: 20101228
  20. ALINAMIN F [Concomitant]
     Dates: start: 20110102, end: 20110102
  21. LOCOID C [Concomitant]
     Indication: PSORIATIC ARTHROPATHY
     Route: 061
     Dates: start: 20101008, end: 20101008
  22. VOLTAREN [Concomitant]
     Route: 054
     Dates: start: 20100823, end: 20100823
  23. ISODINE GARGLE [Concomitant]
     Dates: start: 20100928, end: 20100928
  24. ISODINE GARGLE [Concomitant]
     Dosage: ROUTE: OR
     Dates: start: 20100827, end: 20100827
  25. CEFOTIAM HYDROCHLORIDE [Concomitant]
     Dates: start: 20100821, end: 20100827
  26. REMICADE [Suspect]
     Indication: PSORIATIC ARTHROPATHY
     Route: 042
     Dates: start: 20100831
  27. LASIX [Suspect]
     Route: 048
     Dates: start: 20101125, end: 20101125
  28. ALBUMIN (HUMAN) [Suspect]
     Dates: start: 20101119, end: 20101124
  29. URSO 250 [Concomitant]
     Route: 048
     Dates: start: 20100914, end: 20101018
  30. DEPAS [Concomitant]
     Indication: INSOMNIA
     Route: 048
     Dates: start: 20100915, end: 20101122
  31. DEPAS [Concomitant]
     Route: 048
     Dates: start: 20100914, end: 20100914
  32. HEPAFLUSH [Concomitant]
     Dates: start: 20100827, end: 20100827
  33. HEPAFLUSH [Concomitant]
     Dates: start: 20101001, end: 20101012
  34. ISOTONIC SODIUM CHLORIDE [Concomitant]
     Route: 042
     Dates: start: 20101001, end: 20110103
  35. DISTILLED WATER [Concomitant]
     Dosage: ALL REPORTED AS 20 DF
     Dates: start: 20100817, end: 20100827
  36. DISTILLED WATER [Concomitant]
     Dates: start: 20101102, end: 20101102
  37. NEO-MINOPHAGEN C [Concomitant]
     Dates: start: 20101018
  38. LEVOFLOXACIN [Concomitant]
     Route: 048
     Dates: start: 20101222, end: 20110103
  39. FUNGIZONE [Concomitant]
     Route: 048
     Dates: start: 20101116, end: 20101122
  40. HEPARIN [Concomitant]
     Route: 061
     Dates: start: 20101015, end: 20101201
  41. PREDNISOLONE [Concomitant]
     Route: 048
     Dates: start: 20101224, end: 20110103
  42. LEVOTHYROXINE SODIUM [Concomitant]
     Dosage: DOSE: 25DF
     Route: 048
     Dates: start: 20101106, end: 20101126
  43. TPN ELECTROLYTES IN PLASTIC CONTAINER [Concomitant]
     Dates: start: 20101201, end: 20101206
  44. LOXONIN [Concomitant]
     Indication: PAIN PROPHYLAXIS
     Dosage: DOSE: 60DF
     Route: 048
     Dates: start: 20101230, end: 20110103
  45. SODIUM BICARBONATE [Concomitant]
     Dates: start: 20110102, end: 20110102
  46. OLMESARTAN MEDOXOMIL [Concomitant]
     Route: 048
     Dates: start: 20100901, end: 20100907
  47. REMICADE [Suspect]
     Dosage: 3RD DOSE
     Route: 042
     Dates: start: 20100928
  48. PREDNISOLONE [Suspect]
     Indication: PSORIATIC ARTHROPATHY
     Route: 048
     Dates: start: 20100901, end: 20100907
  49. COTRIM [Suspect]
     Dosage: 2 TABS
     Route: 048
     Dates: start: 20101122, end: 20101123
  50. FIRSTCIN [Suspect]
     Indication: PRODUCT USED FOR UNKNOWN INDICATION
     Dates: start: 20101118, end: 20101118
  51. FIRSTCIN [Suspect]
     Dates: start: 20101119, end: 20101119
  52. RABEPRAZOLE SODIUM [Suspect]
     Indication: PRODUCT USED FOR UNKNOWN INDICATION
     Route: 048
     Dates: start: 20101028, end: 20101028
  53. RABEPRAZOLE SODIUM [Suspect]
     Route: 048
     Dates: start: 20101029, end: 20101031
  54. ALDACTONE [Suspect]
     Indication: PRODUCT USED FOR UNKNOWN INDICATION
     Route: 048
     Dates: start: 20101112, end: 20101114
  55. OXAROL [Concomitant]
     Indication: PSORIATIC ARTHROPATHY
     Route: 061
  56. HEPAFLUSH [Concomitant]
     Dates: start: 20100823, end: 20100823
  57. HEPAFLUSH [Concomitant]
     Dates: start: 20101201, end: 20101216
  58. ISOTONIC SODIUM CHLORIDE [Concomitant]
     Route: 042
     Dates: start: 20100817, end: 20100817
  59. FUNGIZONE [Concomitant]
     Route: 048
     Dates: start: 20101103, end: 20101109
  60. NON-PYRINE COLD PREPARATION [Concomitant]
     Route: 048
     Dates: start: 20100926, end: 20100929
  61. LIDEX CREAM [Concomitant]
  62. GLYCERINE [Concomitant]
     Route: 054
     Dates: start: 20101022, end: 20101022
  63. PROPETO [Concomitant]
     Route: 061
     Dates: start: 20101023, end: 20101129
  64. VITAMEDIN [Concomitant]
     Dates: start: 20110102, end: 20110103
  65. VEEN-D [Concomitant]
     Dates: start: 20101025, end: 20101025
  66. PREDNISOLONE [Concomitant]
     Route: 048
     Dates: start: 20101109, end: 20101116
  67. FERRO-GRADUMET [Concomitant]
     Route: 048
     Dates: start: 20101105, end: 20101110
  68. SOLDEM 1 [Concomitant]
     Dates: start: 20101221, end: 20101223
  69. LIDOMEX [Concomitant]
     Route: 061
     Dates: start: 20101008, end: 20101008
  70. SLOW-K [Concomitant]
     Route: 048
     Dates: start: 20101213, end: 20101222
  71. HEPARIN SODIUM [Concomitant]
     Dates: start: 20110102, end: 20110102
  72. VANCOMYCIN [Concomitant]
     Dates: start: 20110102, end: 20110103
  73. INTRAVENOUS HYPERALIMENTATION [Concomitant]
     Dosage: DOSE: 500DF
     Dates: start: 20110102, end: 20110103
  74. ISODINE GARGLE [Concomitant]
     Dates: start: 20100901, end: 20100901
  75. CEFOPERAZONE SODIUM [Concomitant]
     Dates: start: 20101006, end: 20101012
  76. COTRIM [Suspect]
     Dosage: 2 TABS
     Route: 048
     Dates: start: 20101118, end: 20101119
  77. ALBUMIN (HUMAN) [Suspect]
     Indication: PRODUCT USED FOR UNKNOWN INDICATION
     Dates: start: 20101202, end: 20101204
  78. ALBUMIN (HUMAN) [Suspect]
     Dates: start: 20110102, end: 20110102
  79. RABEPRAZOLE SODIUM [Suspect]
     Route: 048
     Dates: start: 20101027, end: 20101027
  80. ALDACTONE [Suspect]
     Route: 048
     Dates: start: 20101116, end: 20101122
  81. SELBEX [Concomitant]
     Route: 048
     Dates: start: 20100928, end: 20101025
  82. ISOTONIC SODIUM CHLORIDE [Concomitant]
     Route: 042
     Dates: start: 20100831, end: 20100831
  83. ISOTONIC SODIUM CHLORIDE [Concomitant]
     Route: 042
     Dates: start: 20100821, end: 20100827
  84. NEO-MINOPHAGEN C [Concomitant]
     Dates: start: 20100831, end: 20100831
  85. NEO-MINOPHAGEN C [Concomitant]
     Dates: start: 20100914, end: 20100914
  86. NEO-MINOPHAGEN C [Concomitant]
     Dates: start: 20100928, end: 20100928
  87. HYALEIN [Concomitant]
     Route: 031
     Dates: start: 20101008, end: 20101008
  88. METHYLPREDNISOLONE SODIUM SUCCINATE [Concomitant]
     Dates: start: 20101221, end: 20101223
  89. VEEN-F [Concomitant]
     Dates: start: 20110102, end: 20110102
  90. PENTAZOCINE LACTATE [Concomitant]
     Route: 030
     Dates: start: 20101024, end: 20101024
  91. ATARAX [Concomitant]
     Dates: start: 20101231, end: 20110103
  92. ATROPINE SULFATE [Concomitant]
     Route: 030
     Dates: start: 20101025, end: 20101025
  93. PREDNISOLONE [Concomitant]
     Route: 048
     Dates: start: 20101116, end: 20101201
  94. SOLITA-T NO.4 [Concomitant]
     Dates: start: 20101026, end: 20101104
  95. MUCOSTA [Concomitant]
     Route: 048
     Dates: start: 20101026, end: 20101122
  96. IMMUNE GLOBULIN (HUMAN) [Concomitant]
     Dates: start: 20101028, end: 20101030
  97. FERRO-GRADUMET [Concomitant]
     Route: 048
     Dates: start: 20101112, end: 20101122
  98. HUMALOG [Concomitant]
     Dates: start: 20101220, end: 20101220
  99. DEXALTIN [Concomitant]
     Route: 061
     Dates: start: 20101201, end: 20101201
  100. ETOPOSIDE [Concomitant]
     Dates: start: 20110102, end: 20110102
  101. CALCIUM CARBONATE [Concomitant]
     Dates: start: 20110102, end: 20110102
  102. CLINDAMYCIN [Concomitant]
     Dates: start: 20110102, end: 20110103
  103. PROPOFOL [Concomitant]
     Dates: start: 20110103, end: 20110103
  104. ISODINE GARGLE [Concomitant]
     Dates: start: 20101116, end: 20101116
  105. OLMESARTAN MEDOXOMIL [Concomitant]
     Indication: HYPERTENSION
     Route: 048
     Dates: start: 20100914, end: 20101018
  106. PREDNISOLONE [Suspect]
     Route: 048
  107. COTRIM [Suspect]
     Dosage: 6 TABS
     Route: 048
     Dates: start: 20101025, end: 20101111
  108. LASIX [Suspect]
     Indication: PRODUCT USED FOR UNKNOWN INDICATION
     Route: 048
     Dates: start: 20101102, end: 20101106
  109. LASIX [Suspect]
     Route: 048
     Dates: start: 20101028, end: 20101028
  110. LASIX [Suspect]
     Route: 048
     Dates: start: 20101117, end: 20101122
  111. ALBUMIN (HUMAN) [Suspect]
     Dates: start: 20101231, end: 20101231
  112. HYDROCORTISONE BUTYRATE [Concomitant]
     Indication: PSORIATIC ARTHROPATHY
     Route: 061
  113. HEPAFLUSH [Concomitant]
     Dates: start: 20100824, end: 20100825
  114. NEO-MINOPHAGEN C [Concomitant]
     Dates: start: 20100826, end: 20100826
  115. NEO-MINOPHAGEN C [Concomitant]
     Dates: start: 20100817, end: 20100817
  116. NEO-MINOPHAGEN C [Concomitant]
     Dates: start: 20100819, end: 20100819
  117. FUNGIZONE [Concomitant]
     Route: 048
     Dates: start: 20100928, end: 20100929
  118. FUNGIZONE [Concomitant]
     Route: 048
     Dates: start: 20100926, end: 20100927
  119. LACTATED RINGER'S [Concomitant]
     Dates: start: 20110102, end: 20110102
  120. VEEN-F [Concomitant]
     Dates: start: 20101023, end: 20101025
  121. VITAMEDIN [Concomitant]
     Dates: start: 20101023, end: 20101029
  122. PREDNISOLONE [Concomitant]
     Route: 048
     Dates: start: 20101201, end: 20101224
  123. SODIUM CHLORIDE 10% [Concomitant]
     Route: 042
     Dates: start: 20101102, end: 20101102
  124. ACETAMINOPHEN [Concomitant]
     Indication: ANTIPYRESIS
     Dosage: 200DF
     Route: 048
     Dates: start: 20101230, end: 20110101
  125. ANTEBATE [Concomitant]
     Dosage: START DATE REPORTED AS PRIOR TO INITIATION OF INFLIXIMAB
     Route: 061
  126. VOLTAREN [Concomitant]
     Indication: ANTIPYRESIS
     Route: 054
     Dates: start: 20101119, end: 20101120
  127. SULFASALAZINE [Concomitant]
     Dates: start: 20091027
  128. COTRIM [Suspect]
     Indication: PRODUCT USED FOR UNKNOWN INDICATION
     Dosage: 6 TABS
     Route: 048
     Dates: start: 20101102, end: 20101115
  129. LASIX [Suspect]
     Route: 048
     Dates: start: 20101029, end: 20101031
  130. LASIX [Suspect]
     Route: 048
     Dates: start: 20101215, end: 20101216
  131. FIRSTCIN [Suspect]
     Dates: start: 20101105, end: 20101110
  132. RABEPRAZOLE SODIUM [Suspect]
     Route: 048
     Dates: start: 20101102, end: 20101106
  133. ALDACTONE [Suspect]
     Route: 048
     Dates: start: 20101026, end: 20101101
  134. ROCEPHIN [Suspect]
     Dates: start: 20101118, end: 20101122
  135. DEPAS [Concomitant]
     Route: 048
     Dates: start: 20100901, end: 20100913
  136. DEPAS [Concomitant]
     Route: 048
     Dates: start: 20101215, end: 20101225
  137. ISOTONIC SODIUM CHLORIDE [Concomitant]
     Route: 042
     Dates: start: 20100928, end: 20100928
  138. LAMISIL [Concomitant]
     Route: 061
     Dates: start: 20100818, end: 20100818
  139. LEVOFLOXACIN [Concomitant]
     Route: 048
     Dates: start: 20100827, end: 20100830
  140. DOVONEX [Concomitant]
     Route: 061
     Dates: start: 20100926, end: 20100926
  141. METHYLPREDNISOLONE SODIUM SUCCINATE [Concomitant]
     Dates: start: 20110101, end: 20110103
  142. PENTAZOCINE LACTATE [Concomitant]
     Route: 030
     Dates: start: 20101231, end: 20110103
  143. PRIMPERAN TAB [Concomitant]
     Dates: start: 20101024, end: 20101024
  144. IMMUNE GLOBULIN (HUMAN) [Concomitant]
     Dates: start: 20101119, end: 20101121
  145. POLAPREZINC [Concomitant]
     Route: 048
     Dates: start: 20101112, end: 20101122
  146. FAMOTIDINE [Concomitant]
     Route: 048
     Dates: start: 20101106
  147. LAC-B [Concomitant]
     Route: 048
     Dates: start: 20101201, end: 20101207
  148. MAINTENANCE MEDIUM WITH GLUCOSE [Concomitant]
     Dosage: DOSE: 500DF
     Dates: start: 20101201, end: 20101204
  149. POTASSIUM CHLORIDE [Concomitant]
     Dates: start: 20101201, end: 20101206
  150. PENTAMIDINE ISETHIONATE [Concomitant]
     Dates: start: 20101222, end: 20101224
  151. CLOBETASOL PROPIONATE [Concomitant]
     Dosage: START DATE REPORTED AS PRIOR TO INITIATION OF INFLIXIMAB
     Route: 061
  152. OLOPATADINE HCL [Concomitant]
     Route: 048
     Dates: start: 20100914, end: 20100915
  153. PREDNISOLONE [Suspect]
     Route: 048
     Dates: start: 20100914, end: 20110103
  154. RABEPRAZOLE SODIUM [Suspect]
     Route: 048
     Dates: start: 20101026, end: 20101026
  155. HEPAFLUSH [Concomitant]
     Dates: start: 20100821, end: 20100822
  156. HEPAFLUSH [Concomitant]
     Dates: start: 20100826, end: 20100826
  157. DISTILLED WATER [Concomitant]
     Dates: start: 20100831, end: 20100831
  158. DISTILLED WATER [Concomitant]
     Dates: start: 20101122, end: 20101124
  159. DOVONEX [Concomitant]
     Route: 061
     Dates: start: 20100928, end: 20100928
  160. FUNGIZONE [Concomitant]
     Route: 048
     Dates: start: 20100930, end: 20101018
  161. METHYLPREDNISOLONE SODIUM SUCCINATE [Concomitant]
     Dates: start: 20101022, end: 20101024
  162. SOLDEM 1 [Concomitant]
     Dates: start: 20100101, end: 20110103
  163. TPN ELECTROLYTES IN PLASTIC CONTAINER [Concomitant]
     Dates: start: 20110102, end: 20110103
  164. LIDOMEX [Concomitant]
     Route: 061
     Dates: start: 20101209, end: 20101209
  165. TORSEMIDE [Concomitant]
     Route: 048
     Dates: start: 20101216
  166. MEPTIN [Concomitant]
     Route: 055
     Dates: start: 20101222, end: 20101228
  167. ELEMENMIC [Concomitant]
     Dates: start: 20110102, end: 20110103
  168. DOBUTAMINE HCL [Concomitant]
     Dates: start: 20110103, end: 20110103
  169. CIPRO [Concomitant]
     Dates: end: 20101216
  170. CIPRO [Concomitant]
     Dates: end: 20101027
  171. CEFOTIAM HYDROCHLORIDE [Concomitant]
     Dates: end: 20101006
  172. OLOPATADINE HCL [Concomitant]
     Route: 048
     Dates: start: 20100830, end: 20100830
  173. REMICADE [Suspect]
     Route: 042
     Dates: start: 20100817
  174. COTRIM [Suspect]
     Dosage: 6 TABS
     Route: 048
     Dates: start: 20101029, end: 20101031
  175. COTRIM [Suspect]
     Dosage: 9 TABS
     Route: 048
     Dates: start: 20101022, end: 20101025
  176. ALBUMIN (HUMAN) [Suspect]
     Dates: start: 20101102, end: 20101106
  177. RABEPRAZOLE SODIUM [Suspect]
     Route: 048
     Dates: start: 20101023, end: 20101025
  178. ALDACTONE [Suspect]
     Route: 048
     Dates: start: 20101115, end: 20101115
  179. URSO 250 [Concomitant]
     Indication: HEPATITIS C
     Route: 048
     Dates: start: 20101029, end: 20101122
  180. URSO 250 [Concomitant]
     Route: 048
     Dates: start: 20100817, end: 20100906
  181. CLOBETASOL PROPIONATE [Concomitant]
     Indication: PSORIATIC ARTHROPATHY
     Route: 061
  182. ANTEBATE [Concomitant]
     Indication: PSORIATIC ARTHROPATHY
     Route: 061
  183. SELBEX [Concomitant]
     Indication: PROPHYLAXIS
     Route: 048
     Dates: start: 20101121, end: 20110103
  184. HEPAFLUSH [Concomitant]
     Dates: start: 20101118, end: 20101124
  185. HEPAFLUSH [Concomitant]
     Dates: start: 20101221, end: 20110103
  186. DISTILLED WATER [Concomitant]
     Dates: start: 20100928, end: 20100928
  187. NEO-MINOPHAGEN C [Concomitant]
     Dates: start: 20100823, end: 20100823
  188. DOVONEX [Concomitant]
     Route: 061
     Dates: start: 20100901, end: 20100901
  189. LACTATED RINGER'S [Concomitant]
     Dosage: DOSE = 500 DF
     Dates: start: 20101022, end: 20101022
  190. ATARAX [Concomitant]
     Dates: start: 20110101, end: 20110103
  191. PREDNISOLONE [Concomitant]
     Route: 048
     Dates: start: 20101025, end: 20101109
  192. SOLDEM 1 [Concomitant]
     Dates: start: 20101119, end: 20101120
  193. LIDOMEX [Concomitant]
     Route: 061
     Dates: start: 20101203, end: 20101212
  194. COAHIBITOR [Concomitant]
     Dates: start: 20101231, end: 20110103
  195. INOVAN [Concomitant]
     Dates: start: 20110103, end: 20110103
  196. TRH [Concomitant]
     Route: 042
     Dates: start: 20101115, end: 20101115
  197. SULFASALAZINE [Concomitant]
     Dates: start: 20090201

REACTIONS (14)
  - HEPATITIS C [None]
  - BURSITIS [None]
  - DRUG ERUPTION [None]
  - PLATELET COUNT DECREASED [None]
  - RENAL DISORDER [None]
  - INFECTION [None]
  - PYREXIA [None]
  - PNEUMOCYSTIS JIROVECI PNEUMONIA [None]
  - ANAEMIA [None]
  - MULTI-ORGAN FAILURE [None]
  - ASCITES [None]
  - DRUG-INDUCED LIVER INJURY [None]
  - CELLULITIS [None]
  - HISTIOCYTOSIS HAEMATOPHAGIC [None]
